FAERS Safety Report 9730499 (Version 1)
Quarter: 2013Q4

REPORT INFORMATION
  Report Type: Spontaneous
  Country: US (occurrence: US)
  Receive Date: 20131202
  Receipt Date: 20131202
  Transmission Date: 20140711
  Serious: Yes (Hospitalization)
  Sender: FDA-Public Use
  Company Number: US-BRISTOL-MYERS SQUIBB COMPANY-19849801

PATIENT
  Age: 68 Year
  Sex: Male
  Weight: 106.57 kg

DRUGS (3)
  1. COUMADIN [Suspect]
  2. VFEND [Suspect]
     Indication: FUNGAL INFECTION
     Dates: start: 201306
  3. XANAX [Concomitant]

REACTIONS (1)
  - Renal disorder [Recovering/Resolving]
